FAERS Safety Report 4967279-9 (Version None)
Quarter: 2006Q2

REPORT INFORMATION
  Report Type: 
  Country: None (occurrence: None)
  Receive Date: 20060403
  Receipt Date: 20060321
  Transmission Date: 20061013
  Serious: Yes (Death)
  Sender: FDA-Public Use
  Company Number: 2006-049

PATIENT
  Age: 22 Year
  Sex: Female

DRUGS (1)
  1. CITALOPRAM [Suspect]
     Indication: DEPRESSION

REACTIONS (1)
  - OVERDOSE [None]
